FAERS Safety Report 10158586 (Version 1)
Quarter: 2014Q2

REPORT INFORMATION
  Report Type: Report from Study
  Country: US (occurrence: US)
  Receive Date: 20140508
  Receipt Date: 20140508
  Transmission Date: 20141212
  Serious: Yes (Death, Other)
  Sender: FDA-Public Use
  Company Number: US-ROCHE-1391380

PATIENT
  Sex: 0

DRUGS (9)
  1. RITUXIMAB [Suspect]
     Indication: NON-HODGKIN^S LYMPHOMA
     Dosage: ON DAYS 1 AND 8
     Route: 042
  2. RITUXIMAB [Suspect]
     Dosage: MAINTAINENCE; FOR 4 DOSES STARTING BETWEEN DAY + 42 AND DAY +75 AFTER AUTOLOGOUSHCT, PROVIDED THAT T
     Route: 042
  3. RITUXIMAB [Suspect]
     Dosage: DAYS -13, -6, 11, AND 18; ALLOGENIC HCT CONDITIONING
     Route: 042
  4. CYCLOPHOSPHAMIDE [Suspect]
     Indication: NON-HODGKIN^S LYMPHOMA
     Dosage: ON DAY 2
     Route: 042
  5. CYCLOPHOSPHAMIDE [Suspect]
     Dosage: ON DAY -2; AS CONDITIONING FOR AUTOLOGOUS HCT
     Route: 065
  6. CYCLOPHOSPHAMIDE [Suspect]
     Dosage: CONDITIONING FOR ALLOGENIC HCT; DAYS -6, -5, AND -4
     Route: 042
  7. FLUDARABINE [Suspect]
     Indication: NON-HODGKIN^S LYMPHOMA
     Route: 042
  8. ETOPOSIDE [Suspect]
     Indication: NON-HODGKIN^S LYMPHOMA
     Dosage: ON DAY -4
     Route: 042
  9. CARMUSTINE [Suspect]
     Indication: NON-HODGKIN^S LYMPHOMA
     Dosage: ON DAY -6
     Route: 065

REACTIONS (12)
  - Infection [Fatal]
  - Alanine aminotransferase increased [Unknown]
  - Blood alkaline phosphatase increased [Unknown]
  - Blood bilirubin increased [Unknown]
  - Pneumonitis [Unknown]
  - Dyspnoea [Unknown]
  - Hypoxia [Unknown]
  - Haemorrhage [Unknown]
  - Angiopathy [Unknown]
  - Hypotension [Unknown]
  - Mucosal inflammation [Unknown]
  - Neutropenia [Unknown]
